FAERS Safety Report 8897613 (Version 1)
Quarter: 2012Q4

REPORT INFORMATION
  Report Type: 
  Country: US (occurrence: US)
  Receive Date: 20121108
  Receipt Date: 20121108
  Transmission Date: 20130627
  Serious: No
  Sender: FDA-Public Use
  Company Number: US-AMGEN-USASP2012038744

PATIENT
  Age: 79 Year
  Sex: Male

DRUGS (1)
  1. ENBREL [Suspect]
     Indication: PSORIASIS
     Dosage: 50 mg twice weekly 72-96 hours apart for 3 months, then 50mg subcutaneously once a week
     Route: 058
     Dates: start: 20120602

REACTIONS (1)
  - Fatigue [Unknown]
